FAERS Safety Report 9284438 (Version 2)
Quarter: 2013Q2

REPORT INFORMATION
  Report Type: Report from Study
  Country: US (occurrence: US)
  Receive Date: 20130510
  Receipt Date: 20130628
  Transmission Date: 20140414
  Serious: Yes (Hospitalization)
  Sender: FDA-Public Use
  Company Number: US-US-EMD SERONO, INC.-7189735

PATIENT
  Age: 47 Year
  Sex: Female

DRUGS (3)
  1. REBIF [Suspect]
     Indication: PRODUCT USED FOR UNKNOWN INDICATION
     Route: 058
     Dates: start: 20120525
  2. LYRICA [Concomitant]
     Indication: PARAESTHESIA
  3. LYRICA [Concomitant]
     Indication: BURNING SENSATION

REACTIONS (8)
  - Ataxia [Unknown]
  - Fall [Unknown]
  - Electrocardiogram abnormal [Unknown]
  - Urinary retention [Unknown]
  - Back injury [Unknown]
  - Malaise [Not Recovered/Not Resolved]
  - Pain [Not Recovered/Not Resolved]
  - Chills [Not Recovered/Not Resolved]
